FAERS Safety Report 6646830-7 (Version None)
Quarter: 2010Q1

REPORT INFORMATION
  Report Type: 
  Country: None (occurrence: None)
  Receive Date: 20100323
  Receipt Date: 20100312
  Transmission Date: 20100710
  Serious: Yes (Other)
  Sender: FDA-Public Use
  Company Number: US-JNJFOC-20100304331

PATIENT
  Sex: Male
  Weight: 42 kg

DRUGS (1)
  1. REMICADE [Suspect]
     Indication: CROHN'S DISEASE
     Route: 042

REACTIONS (4)
  - BACK PAIN [None]
  - DYSPNOEA [None]
  - INFUSION RELATED REACTION [None]
  - THROAT TIGHTNESS [None]
